FAERS Safety Report 9000090 (Version 1)
Quarter: 2013Q1

REPORT INFORMATION
  Report Type: Spontaneous
  Country: GB (occurrence: GB)
  Receive Date: 20130102
  Receipt Date: 20130102
  Transmission Date: 20140127
  Serious: Yes (Disabling, Other)
  Sender: FDA-Public Use
  Company Number: GB-UCBSA-074167

PATIENT
  Age: 51 Year
  Sex: Female

DRUGS (5)
  1. CIMZIA [Suspect]
     Indication: RHEUMATOID ARTHRITIS
     Route: 058
     Dates: start: 2011, end: 201106
  2. CIMZIA [Suspect]
     Indication: RHEUMATOID ARTHRITIS
     Route: 058
     Dates: start: 201103, end: 2011
  3. TOCILIZUMAB [Suspect]
     Indication: RHEUMATOID ARTHRITIS
     Dosage: DOSE: 8MG/KG
     Route: 042
     Dates: start: 201108, end: 201208
  4. CICLOSPORIN [Concomitant]
  5. METHOTREXATE [Concomitant]

REACTIONS (4)
  - Metastases to bone [Unknown]
  - Back pain [Unknown]
  - Costovertebral angle tenderness [Unknown]
  - Drug ineffective [Recovered/Resolved]
